FAERS Safety Report 4500869-6 (Version None)
Quarter: 2004Q4

REPORT INFORMATION
  Report Type: 
  Country: None (occurrence: None)
  Receive Date: 20041109
  Receipt Date: 20041102
  Transmission Date: 20050328
  Serious: Yes (Hospitalization)
  Sender: FDA-Public Use
  Company Number: 200420851BWH

PATIENT
  Age: 76 Year
  Sex: Male

DRUGS (7)
  1. LEVITRA [Suspect]
     Indication: ERECTILE DYSFUNCTION
     Dosage: SEE IMAGE
     Route: 048
     Dates: start: 20040825
  2. LEVITRA [Suspect]
     Indication: ERECTILE DYSFUNCTION
     Dosage: SEE IMAGE
     Route: 048
     Dates: start: 20041006
  3. ELIGARD [Concomitant]
  4. DETROL - SLOW RELEASE [Concomitant]
  5. GLUCOPHAGE [Concomitant]
  6. PLAVIX [Concomitant]
  7. ASPIRIN [Concomitant]

REACTIONS (4)
  - BRAIN NEOPLASM [None]
  - DYSARTHRIA [None]
  - HEADACHE [None]
  - MEDICATION ERROR [None]
